FAERS Safety Report 7350778-2 (Version None)
Quarter: 2011Q1

REPORT INFORMATION
  Report Type: 
  Country: None (occurrence: None)
  Receive Date: 20110222
  Receipt Date: 20101130
  Transmission Date: 20110831
  Serious: No
  Sender: FDA-Public Use
  Company Number: 020911

PATIENT
  Sex: Female
  Weight: 66 kg

DRUGS (5)
  1. LACOSAMIDE [Suspect]
     Dosage: SEE IMAGE
     Route: 048
     Dates: start: 20100101, end: 20100101
  2. LACOSAMIDE [Suspect]
     Dosage: SEE IMAGE
     Route: 048
     Dates: start: 20100101, end: 20100101
  3. LACOSAMIDE [Suspect]
     Dosage: SEE IMAGE
     Route: 048
     Dates: start: 20100419, end: 20100101
  4. LACOSAMIDE [Suspect]
     Dosage: SEE IMAGE
     Route: 048
     Dates: start: 20100101, end: 20100826
  5. ZONEGRAN [Concomitant]

REACTIONS (1)
  - MYOCLONUS [None]
